FAERS Safety Report 4745479-0 (Version None)
Quarter: 2005Q3

REPORT INFORMATION
  Report Type: 
  Country: None (occurrence: None)
  Receive Date: 20050815
  Receipt Date: 20050117
  Transmission Date: 20060218
  Serious: Yes (Hospitalization)
  Sender: FDA-Public Use
  Company Number: US-MERCK-0501USA02569

PATIENT
  Age: 63 Year
  Sex: Female
  Weight: 88 kg

DRUGS (21)
  1. MECLIZINE [Concomitant]
     Route: 048
  2. ALLEGRA [Concomitant]
     Route: 048
  3. ULTRACET [Concomitant]
     Route: 065
  4. CALCIUM ALGINATE [Concomitant]
     Route: 065
  5. VIOXX [Suspect]
     Indication: NECK PAIN
     Route: 048
     Dates: start: 20021031, end: 20030904
  6. VIOXX [Suspect]
     Route: 048
     Dates: start: 20030708
  7. VIOXX [Suspect]
     Indication: OSTEOARTHRITIS
     Route: 048
     Dates: start: 20021031, end: 20030904
  8. VIOXX [Suspect]
     Route: 048
     Dates: start: 20030708
  9. ACTOS [Concomitant]
     Indication: DIABETES MELLITUS
     Route: 048
  10. METFORMIN [Concomitant]
     Indication: DIABETES MELLITUS
     Route: 048
  11. ALTACE [Concomitant]
     Indication: HYPERTENSION
     Route: 065
     Dates: end: 20030114
  12. NORVASC [Concomitant]
     Route: 065
     Dates: end: 20030114
  13. NITROGLYCERIN [Concomitant]
     Indication: CHEST PAIN
     Route: 060
  14. PLAVIX [Concomitant]
     Route: 048
  15. ZOCOR [Concomitant]
     Route: 048
  16. AMARYL [Concomitant]
     Indication: DIABETES MELLITUS
     Route: 048
  17. ASPIRIN [Concomitant]
     Route: 048
  18. DETROL [Concomitant]
     Route: 048
  19. LEVOXYL [Concomitant]
     Route: 048
  20. ESTRADIOL [Concomitant]
     Route: 048
  21. GLUCOPHAGE [Concomitant]
     Route: 065

REACTIONS (37)
  - ANGINA UNSTABLE [None]
  - AORTIC VALVE SCLEROSIS [None]
  - ARTHRALGIA [None]
  - CARPAL TUNNEL SYNDROME [None]
  - CERVICAL CORD COMPRESSION [None]
  - CERVICOBRACHIAL SYNDROME [None]
  - CHEST PAIN [None]
  - DERMATITIS CONTACT [None]
  - DILATATION VENTRICULAR [None]
  - DRUG EFFECT DECREASED [None]
  - DRUG INTOLERANCE [None]
  - ELECTROCARDIOGRAM ST-T CHANGE [None]
  - EXOSTOSIS [None]
  - HEADACHE [None]
  - HYPERTENSION [None]
  - HYPOGLYCAEMIA [None]
  - INSOMNIA [None]
  - JOINT SPRAIN [None]
  - MACULAR HOLE [None]
  - MALAISE [None]
  - MYOFASCITIS [None]
  - NAUSEA [None]
  - NECK INJURY [None]
  - PEPTIC ULCER [None]
  - PHARMACEUTICAL PRODUCT COMPLAINT [None]
  - RASH [None]
  - REFUSAL OF TREATMENT BY PATIENT [None]
  - RESPIRATORY TRACT INFECTION [None]
  - RETINAL HAEMORRHAGE [None]
  - RHINITIS ALLERGIC [None]
  - SCIATICA [None]
  - SHOULDER PAIN [None]
  - TINEA PEDIS [None]
  - TINNITUS [None]
  - TRANSIENT ISCHAEMIC ATTACK [None]
  - VENTRICULAR HYPERTROPHY [None]
  - WEIGHT INCREASED [None]
